FAERS Safety Report 6036571-1 (Version None)
Quarter: 2009Q1

REPORT INFORMATION
  Report Type: 
  Country: None (occurrence: None)
  Receive Date: 20090112
  Receipt Date: 20081226
  Transmission Date: 20090719
  Serious: Yes (Hospitalization)
  Sender: FDA-Public Use
  Company Number: JP 2008 0061

PATIENT
  Age: 61 Year
  Sex: Male

DRUGS (2)
  1. OXILAN-300 [Suspect]
     Dosage: 15 ML PER DAY INTRA-ARTERIAL
     Route: 013
     Dates: start: 20081226, end: 20081226
  2. ISOSORBIDE DINITRATE [Suspect]
     Dosage: PER DAY
     Dates: start: 20081226, end: 20081226

REACTIONS (1)
  - SHOCK [None]
